FAERS Safety Report 20570719 (Version 1)
Quarter: 2022Q1

REPORT INFORMATION
  Report Type: Spontaneous
  Country: IT (occurrence: IT)
  Receive Date: 20220309
  Receipt Date: 20220309
  Transmission Date: 20220424
  Serious: Yes (Other)
  Sender: FDA-Public Use
  Company Number: None

PATIENT
  Age: 48 Year
  Sex: Female

DRUGS (1)
  1. ADALIMUMAB [Suspect]
     Active Substance: ADALIMUMAB
     Indication: Hidradenitis
     Dosage: UNKNOWN
     Route: 065
     Dates: start: 201909

REACTIONS (3)
  - Lupus-like syndrome [Recovered/Resolved]
  - Hidradenitis [Recovered/Resolved]
  - Therapy partial responder [Unknown]
